FAERS Safety Report 21767230 (Version 1)
Quarter: 2022Q4

REPORT INFORMATION
  Report Type: Spontaneous
  Country: US (occurrence: US)
  Receive Date: 20221222
  Receipt Date: 20221222
  Transmission Date: 20230113
  Serious: No
  Sender: FDA-Public Use
  Company Number: US-SA-SAC20221220000625

PATIENT
  Age: 8 Year
  Sex: Female

DRUGS (1)
  1. ELOCTATE [Suspect]
     Active Substance: EFMOROCTOCOG ALFA
     Indication: Factor VIII deficiency
     Dosage: 1500 IU WEEKLY AND AS NEEDED
     Route: 042
     Dates: start: 20190820

REACTIONS (3)
  - Contusion [Unknown]
  - Pain in extremity [Unknown]
  - Musculoskeletal stiffness [Unknown]
